FAERS Safety Report 4477297-5 (Version None)
Quarter: 2004Q4

REPORT INFORMATION
  Report Type: 
  Country: None (occurrence: None)
  Receive Date: 20041013
  Receipt Date: 20041005
  Transmission Date: 20050328
  Serious: Yes (Death)
  Sender: FDA-Public Use
  Company Number: 2004-121098-NL

PATIENT
  Age: 26 Year
  Sex: Male

DRUGS (1)
  1. MIRTAZAPINE [Suspect]

REACTIONS (1)
  - TOXICOLOGIC TEST ABNORMAL [None]
